FAERS Safety Report 8446553 (Version 4)
Quarter: 2013Q2

REPORT INFORMATION
  Report Type: Spontaneous
  Country: GB (occurrence: GB)
  Receive Date: 20120307
  Receipt Date: 20130528
  Transmission Date: 20140414
  Serious: Yes (Death, Hospitalization)
  Sender: FDA-Public Use
  Company Number: GB-BRISTOL-MYERS SQUIBB COMPANY-16424111

PATIENT
  Age: 39 Year
  Sex: Female
  Weight: 67 kg

DRUGS (2)
  1. YERVOY [Suspect]
     Indication: METASTATIC MALIGNANT MELANOMA
     Dosage: 4 CYCLES?LAST COURSE IN JAN2012
     Route: 042
     Dates: start: 20111207, end: 20120209
  2. PREDNISOLONE [Concomitant]

REACTIONS (5)
  - Colitis [Fatal]
  - Enteritis [Fatal]
  - Cardiac arrest [Fatal]
  - Diarrhoea [Recovered/Resolved]
  - Syncope [Unknown]
